FAERS Safety Report 8109365-0 (Version None)
Quarter: 2012Q1

REPORT INFORMATION
  Report Type: 
  Country: None (occurrence: None)
  Receive Date: 20120202
  Receipt Date: 20120109
  Transmission Date: 20120608
  Serious: No
  Sender: FDA-Public Use
  Company Number: US-AMGEN-USASP2012001380

PATIENT
  Sex: Female

DRUGS (1)
  1. ENBREL [Suspect]
     Indication: RHEUMATOID ARTHRITIS
     Dosage: 50 MG, QWK
     Dates: start: 20110401

REACTIONS (8)
  - RESPIRATORY TRACT CONGESTION [None]
  - INJECTION SITE MASS [None]
  - INJECTION SITE REACTION [None]
  - INJECTION SITE ERYTHEMA [None]
  - GRIP STRENGTH DECREASED [None]
  - HYPOAESTHESIA [None]
  - PARAESTHESIA [None]
  - DYSPNOEA [None]
